FAERS Safety Report 21272797 (Version 3)
Quarter: 2022Q4

REPORT INFORMATION
  Report Type: Spontaneous
  Country: IT (occurrence: IT)
  Receive Date: 20220831
  Receipt Date: 20221028
  Transmission Date: 20230112
  Serious: Yes (Other)
  Sender: FDA-Public Use
  Company Number: IT-CELLTRION INC.-2022IT013835

PATIENT

DRUGS (8)
  1. RITUXIMAB [Suspect]
     Active Substance: RITUXIMAB
     Indication: Stem cell transplant
     Dosage: UNK UNK, NO TREATMENT
  2. RITUXIMAB [Suspect]
     Active Substance: RITUXIMAB
     Indication: Bone marrow conditioning regimen
  3. BUSULFAN [Suspect]
     Active Substance: BUSULFAN
     Indication: Stem cell transplant
     Dosage: 14.7 MG/KG IN 2 DAYS, UNKNOWN (ESTIMATED TOTAL BUSULFAN AUC 48000 NGXH/ML)
  4. BUSULFAN [Suspect]
     Active Substance: BUSULFAN
     Indication: Bone marrow conditioning regimen
  5. FLUDARABINE [Suspect]
     Active Substance: FLUDARABINE PHOSPHATE
     Indication: Stem cell transplant
     Dosage: 60 MG/M2 IN 2 DAYS, UNKNOWN
  6. FLUDARABINE [Suspect]
     Active Substance: FLUDARABINE PHOSPHATE
     Indication: Bone marrow conditioning regimen
  7. MABTHERA [Suspect]
     Active Substance: RITUXIMAB
     Indication: Stem cell transplant
     Dosage: 375 MG/M2, UNKNOWN, 1 DOSE
  8. MABTHERA [Suspect]
     Active Substance: RITUXIMAB
     Indication: Bone marrow conditioning regimen

REACTIONS (2)
  - Mucosal inflammation [Recovered/Resolved]
  - Off label use [Unknown]
